FAERS Safety Report 11190779 (Version 1)
Quarter: 2015Q2

REPORT INFORMATION
  Report Type: Report from Study
  Country: US (occurrence: US)
  Receive Date: 20150615
  Receipt Date: 20150615
  Transmission Date: 20150821
  Serious: Yes (Death, Hospitalization)
  Sender: FDA-Public Use
  Company Number: US-TEVA-570597USA

PATIENT
  Sex: Male

DRUGS (2)
  1. CLOZAPINE. [Suspect]
     Active Substance: CLOZAPINE
     Indication: SCHIZOAFFECTIVE DISORDER
     Route: 048
  2. LITHIUM. [Suspect]
     Active Substance: LITHIUM
     Route: 065

REACTIONS (5)
  - Death [Fatal]
  - Toxicity to various agents [Unknown]
  - Acute kidney injury [Unknown]
  - Cardiac arrest [Unknown]
  - Metabolic encephalopathy [Unknown]
